FAERS Safety Report 9798382 (Version 1)
Quarter: 2014Q1

REPORT INFORMATION
  Report Type: Spontaneous
  Country: US (occurrence: US)
  Receive Date: 20140106
  Receipt Date: 20140106
  Transmission Date: 20141002
  Serious: No
  Sender: FDA-Public Use
  Company Number: US-MYLANLABS-2013S1027326

PATIENT
  Age: 70 Year
  Sex: Female
  Weight: 64.41 kg

DRUGS (3)
  1. METOPROLOL SUCCINATE EXTENDED-RELEASE TABLETS USP [Suspect]
     Indication: ATRIAL FIBRILLATION
     Route: 048
     Dates: start: 201306
  2. METOPROLOL SUCCINATE EXTENDED-RELEASE TABLETS USP [Suspect]
     Indication: OFF LABEL USE
     Route: 048
     Dates: start: 201306
  3. XARELTO [Concomitant]

REACTIONS (7)
  - Dyspnoea [Not Recovered/Not Resolved]
  - Dizziness [Not Recovered/Not Resolved]
  - Memory impairment [Not Recovered/Not Resolved]
  - Depressed mood [Not Recovered/Not Resolved]
  - Diarrhoea [Recovering/Resolving]
  - Abdominal pain upper [Not Recovered/Not Resolved]
  - Fatigue [Not Recovered/Not Resolved]
